FAERS Safety Report 5498280-7 (Version None)
Quarter: 2007Q4

REPORT INFORMATION
  Report Type: 
  Country: None (occurrence: None)
  Receive Date: 20071025
  Receipt Date: 20070424
  Transmission Date: 20080405
  Serious: No
  Sender: FDA-Public Use
  Company Number: A0648557A

PATIENT
  Age: 60 Year
  Sex: Female

DRUGS (3)
  1. ADVAIR DISKUS 100/50 [Suspect]
     Indication: ASTHMA
     Dosage: 1PUFF TWICE PER DAY
     Route: 055
     Dates: start: 20070423
  2. TAVIST [Concomitant]
  3. VALIUM [Concomitant]

REACTIONS (5)
  - BLOOD PRESSURE INCREASED [None]
  - COUGH [None]
  - DIARRHOEA [None]
  - HEADACHE [None]
  - MUSCLE SPASMS [None]
